FAERS Safety Report 16519968 (Version 2)
Quarter: 2019Q3

REPORT INFORMATION
  Report Type: Report from Study
  Country: ES (occurrence: ES)
  Receive Date: 20190702
  Receipt Date: 20190709
  Transmission Date: 20191004
  Serious: Yes (Hospitalization)
  Sender: FDA-Public Use
  Company Number: ES-EXELIXIS-XL18419021350

PATIENT
  Age: 73 Year
  Sex: Male
  Weight: 77 kg

DRUGS (16)
  1. VALSARTAN. [Concomitant]
     Active Substance: VALSARTAN
     Indication: PRODUCT USED FOR UNKNOWN INDICATION
     Dosage: 160 MILLIGRAM
     Route: 048
     Dates: start: 20190225
  2. CABOZANTINIB [Suspect]
     Active Substance: CABOZANTINIB
     Indication: METASTATIC RENAL CELL CARCINOMA
     Dosage: 40 MG, UNK
     Route: 048
     Dates: start: 20190115, end: 20190606
  3. LORAZEPAM. [Concomitant]
     Active Substance: LORAZEPAM
     Indication: PRODUCT USED FOR UNKNOWN INDICATION
     Dosage: 1 MILLIGRAM
     Route: 048
     Dates: start: 20190408
  4. HYDROCHLOROTHIAZIDE. [Concomitant]
     Active Substance: HYDROCHLOROTHIAZIDE
     Indication: PRODUCT USED FOR UNKNOWN INDICATION
     Dosage: 25 MILLIGRAM
     Route: 048
     Dates: start: 20190225
  5. METOCLOPRAMIDE. [Concomitant]
     Active Substance: METOCLOPRAMIDE
     Dosage: 10 MILLIGRAM
     Route: 048
     Dates: start: 20190513, end: 20190522
  6. PARACETAMOL [Concomitant]
     Active Substance: ACETAMINOPHEN
     Indication: PRODUCT USED FOR UNKNOWN INDICATION
     Dosage: 3 GRAM
     Route: 042
     Dates: start: 20190513, end: 20190519
  7. NIVOLUMAB [Suspect]
     Active Substance: NIVOLUMAB
     Indication: METASTATIC RENAL CELL CARCINOMA
     Dosage: 240 MILLIGRAM
     Route: 042
     Dates: start: 20190115, end: 20190115
  8. XALATAN [Concomitant]
     Active Substance: LATANOPROST
     Indication: PRODUCT USED FOR UNKNOWN INDICATION
     Dosage: 1 DOSAGE FORM  (1 DOSAGE FORM= 2.5)
     Route: 047
     Dates: start: 20180920
  9. NIVOLUMAB [Suspect]
     Active Substance: NIVOLUMAB
     Dosage: 240 MILLIGRAM
     Route: 065
     Dates: start: 20190429, end: 20190429
  10. METHYLPREDNISOLONE. [Concomitant]
     Active Substance: METHYLPREDNISOLONE
     Indication: PRODUCT USED FOR UNKNOWN INDICATION
     Dosage: 10 MILLIGRAM
     Route: 048
     Dates: start: 20190404
  11. MORPHINE [Concomitant]
     Active Substance: MORPHINE
     Indication: PRODUCT USED FOR UNKNOWN INDICATION
     Dosage: 0.5 ABSENT
     Route: 058
     Dates: start: 20190513, end: 20190522
  12. OMEPRAZOLUM [Concomitant]
     Indication: PRODUCT USED FOR UNKNOWN INDICATION
     Dosage: 20 MILLIGRAM
     Route: 048
     Dates: start: 20180920
  13. ADIRO [Concomitant]
     Active Substance: ASPIRIN
     Indication: PRODUCT USED FOR UNKNOWN INDICATION
     Dosage: 100 MILLIGRAM
     Route: 048
     Dates: start: 20180920
  14. TRAMADOL. [Concomitant]
     Active Substance: TRAMADOL
     Indication: PRODUCT USED FOR UNKNOWN INDICATION
     Dosage: 300 MILLIGRAM
     Route: 042
     Dates: start: 20190513, end: 20190519
  15. CEFAZOLINA [CEFAZOLIN] [Concomitant]
     Indication: PRODUCT USED FOR UNKNOWN INDICATION
     Dosage: 3 GRAM
     Route: 042
     Dates: start: 20190513, end: 20190514
  16. METOCLOPRAMIDE. [Concomitant]
     Active Substance: METOCLOPRAMIDE
     Indication: PRODUCT USED FOR UNKNOWN INDICATION
     Dosage: 30 MILLIGRAM
     Route: 042
     Dates: start: 20190513, end: 20190516

REACTIONS (1)
  - Peripheral ischaemia [Recovered/Resolved]

NARRATIVE: CASE EVENT DATE: 20190513
